FAERS Safety Report 14436251 (Version 1)
Quarter: 2018Q1

REPORT INFORMATION
  Report Type: Spontaneous
  Country: US (occurrence: US)
  Receive Date: 20180125
  Receipt Date: 20180125
  Transmission Date: 20180509
  Serious: No
  Sender: FDA-Public Use
  Company Number: US-UNITED THERAPEUTICS-UNT-2017-011098

PATIENT
  Sex: Male
  Weight: 78.91 kg

DRUGS (1)
  1. REMODULIN [Suspect]
     Active Substance: TREPROSTINIL
     Indication: PULMONARY HYPERTENSION
     Dosage: 0.0135 ?G/KG, CONTINUING
     Route: 041
     Dates: start: 20170606

REACTIONS (5)
  - Body temperature increased [Unknown]
  - Injection site erythema [Unknown]
  - Injection site discharge [Unknown]
  - Injection site pain [Unknown]
  - Injection site warmth [Unknown]

NARRATIVE: CASE EVENT DATE: 2017
